FAERS Safety Report 24362277 (Version 1)
Quarter: 2024Q3

REPORT INFORMATION
  Report Type: Spontaneous
  Country: US (occurrence: US)
  Receive Date: 20240925
  Receipt Date: 20240925
  Transmission Date: 20241016
  Serious: No
  Sender: ROCHE
  Company Number: US-ROCHE-10000079726

PATIENT
  Age: 51 Year
  Sex: Female

DRUGS (8)
  1. BEVACIZUMAB [Suspect]
     Active Substance: BEVACIZUMAB
     Indication: Metastases to spinal cord
     Dosage: RECEIVED 15 CYCYLES
     Route: 065
  2. AXITINIB [Suspect]
     Active Substance: AXITINIB
     Indication: Metastases to spinal cord
     Route: 065
  3. AXITINIB [Suspect]
     Active Substance: AXITINIB
     Route: 065
  4. FENTANYL [Concomitant]
     Active Substance: FENTANYL\FENTANYL CITRATE
  5. GABAPENTIN [Concomitant]
     Active Substance: GABAPENTIN
  6. HALOPERIDOL [Concomitant]
     Active Substance: HALOPERIDOL
  7. LIDOCAINE [Concomitant]
     Active Substance: LIDOCAINE
  8. OXYCODONE [Concomitant]
     Active Substance: OXYCODONE

REACTIONS (1)
  - Disease progression [Unknown]
